FAERS Safety Report 7086220-9 (Version None)
Quarter: 2010Q4

REPORT INFORMATION
  Report Type: 
  Country: None (occurrence: None)
  Receive Date: 20101105
  Receipt Date: 20101027
  Transmission Date: 20110411
  Serious: Yes (Other)
  Sender: FDA-Public Use
  Company Number: JP-JNJFOC-20101100163

PATIENT
  Sex: Female
  Weight: 64.4 kg

DRUGS (18)
  1. TAPENTADOL [Suspect]
     Indication: CANCER PAIN
     Route: 048
  2. TAPENTADOL [Suspect]
     Route: 048
  3. TAPENTADOL [Suspect]
     Route: 048
  4. TAPENTADOL [Suspect]
     Route: 048
  5. OXYCODONE HCL [Suspect]
     Indication: CANCER PAIN
     Route: 048
  6. OXYCODONE HCL [Suspect]
     Route: 048
  7. OXYCODONE HCL [Suspect]
     Route: 048
  8. OXYCODONE HCL [Suspect]
     Route: 048
  9. CAMPTOSAR [Suspect]
     Indication: CANCER PAIN
     Route: 065
  10. CAMPTOSAR [Suspect]
     Route: 065
  11. CAMPTOSAR [Suspect]
     Route: 065
  12. LEUCOVORIN CALCIUM [Suspect]
     Indication: CANCER PAIN
  13. LEUCOVORIN CALCIUM [Suspect]
  14. LEUCOVORIN CALCIUM [Suspect]
  15. FLUOROURACIL [Suspect]
     Indication: CANCER PAIN
  16. FLUOROURACIL [Suspect]
  17. FLUOROURACIL [Suspect]
  18. ANTIEMETIC [Concomitant]
     Indication: NAUSEA

REACTIONS (1)
  - DIARRHOEA [None]
